FAERS Safety Report 4837754-6 (Version None)
Quarter: 2005Q4

REPORT INFORMATION
  Report Type: 
  Country: None (occurrence: None)
  Receive Date: 20051128
  Receipt Date: 20051004
  Transmission Date: 20060501
  Serious: Yes (Death, Hospitalization, Other)
  Sender: FDA-Public Use
  Company Number: US-MERCK-0510USA03118

PATIENT
  Age: 63 Year
  Sex: Male
  Weight: 89 kg

DRUGS (12)
  1. VIOXX [Suspect]
     Indication: BACK PAIN
     Route: 048
     Dates: start: 20010101, end: 20040414
  2. VIOXX [Suspect]
     Route: 065
     Dates: start: 20040411
  3. GLUCOPHAGE [Concomitant]
     Route: 065
  4. GLIPIZIDE [Concomitant]
     Route: 065
  5. PAXIL [Concomitant]
     Route: 065
  6. ATENOLOL [Concomitant]
     Route: 065
  7. LANOXIN [Concomitant]
     Route: 065
  8. ADALAT [Concomitant]
     Route: 065
  9. ISOSORBIDE [Concomitant]
     Route: 065
  10. PREVACID [Concomitant]
     Route: 065
  11. LIPITOR [Concomitant]
     Route: 065
  12. SYNTHROID [Concomitant]
     Route: 065

REACTIONS (12)
  - AORTIC ANEURYSM RUPTURE [None]
  - AORTIC DISSECTION [None]
  - CEREBRAL INFARCTION [None]
  - CEREBROVASCULAR ACCIDENT [None]
  - DIABETES MELLITUS [None]
  - DRUG INEFFECTIVE [None]
  - GASTROINTESTINAL HAEMORRHAGE [None]
  - MYOCARDIAL INFARCTION [None]
  - PEPTIC ULCER [None]
  - TRANSIENT ISCHAEMIC ATTACK [None]
  - VENTRICULAR HYPERTROPHY [None]
  - VERTIGO [None]
